FAERS Safety Report 21585802 (Version 1)
Quarter: 2022Q4

REPORT INFORMATION
  Report Type: Spontaneous
  Country: CA (occurrence: CA)
  Receive Date: 20221111
  Receipt Date: 20221111
  Transmission Date: 20230113
  Serious: Yes (Life-Threatening, Hospitalization)
  Sender: FDA-Public Use
  Company Number: CA-PFIZER INC-202201292727

PATIENT
  Age: 3 Year
  Sex: Male
  Weight: 56 kg

DRUGS (3)
  1. VINCRISTINE SULFATE [Suspect]
     Active Substance: VINCRISTINE SULFATE
  2. CYTARABINE [Suspect]
     Active Substance: CYTARABINE
  3. ONCASPAR [Suspect]
     Active Substance: PEGASPARGASE

REACTIONS (1)
  - Febrile neutropenia [Recovering/Resolving]
